FAERS Safety Report 7543486-6 (Version None)
Quarter: 2011Q2

REPORT INFORMATION
  Report Type: 
  Country: None (occurrence: None)
  Receive Date: 20110613
  Receipt Date: 20110601
  Transmission Date: 20111010
  Serious: Yes (Hospitalization)
  Sender: FDA-Public Use
  Company Number: US-MUTUAL PHARMACEUTICAL COMPANY, INC.-CLHC20110018

PATIENT
  Sex: Male

DRUGS (11)
  1. KRYSTEXXA [Suspect]
     Dates: start: 20110404, end: 20110404
  2. PREDNISONE [Concomitant]
     Indication: PRODUCT USED FOR UNKNOWN INDICATION
     Route: 065
  3. COLCHICINE [Suspect]
     Indication: GOUT
     Route: 065
     Dates: start: 20090101, end: 20110418
  4. LOSARTAN POTASSIUM [Suspect]
     Indication: BLOOD PRESSURE ABNORMAL
     Route: 065
     Dates: start: 20090101, end: 20110418
  5. KRYSTEXXA [Suspect]
     Dates: start: 20110321, end: 20110321
  6. BUMEX [Suspect]
     Indication: RENAL FAILURE CHRONIC
  7. STEROIDS [Concomitant]
     Indication: ALLERGY PROPHYLAXIS
     Route: 065
     Dates: start: 20110307, end: 20110404
  8. ANTIHISTAMINE [Concomitant]
     Indication: ALLERGY PROPHYLAXIS
     Route: 065
     Dates: start: 20110307, end: 20110404
  9. BUMEX [Suspect]
     Indication: BLOOD PRESSURE ABNORMAL
     Route: 065
     Dates: start: 20090101, end: 20110418
  10. ANAKINRA [Concomitant]
     Indication: PRODUCT USED FOR UNKNOWN INDICATION
     Route: 065
  11. KRYSTEXXA [Suspect]
     Indication: GOUT
     Dates: start: 20110307, end: 20110307

REACTIONS (2)
  - HEPATOTOXICITY [None]
  - RENAL FAILURE ACUTE [None]
